FAERS Safety Report 9922154 (Version 1)
Quarter: 2014Q1

REPORT INFORMATION
  Report Type: Spontaneous
  Country: US (occurrence: US)
  Receive Date: 20140225
  Receipt Date: 20140225
  Transmission Date: 20141002
  Serious: No
  Sender: FDA-Public Use
  Company Number: US-TEVA-465142USA

PATIENT
  Age: 32 Year
  Sex: Female
  Weight: 99.88 kg

DRUGS (5)
  1. PLAN B ONE-STEP [Suspect]
     Indication: POST COITAL CONTRACEPTION
     Dosage: 1.5 MILLIGRAM DAILY;
     Route: 048
     Dates: start: 20140126, end: 20140126
  2. SERTRALINE [Concomitant]
     Indication: DEPRESSION
  3. SERTRALINE [Concomitant]
     Indication: ANXIETY
  4. BUPROPION [Concomitant]
     Indication: DEPRESSION
  5. BUPROPION [Concomitant]
     Indication: ANXIETY

REACTIONS (3)
  - Muscle spasms [Recovered/Resolved]
  - Back pain [Recovered/Resolved]
  - Menstruation irregular [Not Recovered/Not Resolved]
